FAERS Safety Report 10030786 (Version 2)
Quarter: 2014Q1

REPORT INFORMATION
  Report Type: Spontaneous
  Country: US (occurrence: US)
  Receive Date: 20140323
  Receipt Date: 20140323
  Transmission Date: 20141002
  Serious: No
  Sender: FDA-Public Use
  Company Number: US-ALLERGAN-1402189US

PATIENT
  Sex: Female

DRUGS (5)
  1. LATISSE 0.03% [Suspect]
     Indication: GROWTH OF EYELASHES
     Dosage: 2 GTT, UNK
     Route: 061
  2. LATISSE 0.03% [Suspect]
     Dosage: UNK
  3. VERAPAMIL [Concomitant]
     Indication: MIGRAINE PROPHYLAXIS
  4. GABAPENTIN [Concomitant]
     Indication: MIGRAINE PROPHYLAXIS
  5. ARMOUR THYROID [Concomitant]
     Indication: AUTOIMMUNE THYROIDITIS

REACTIONS (3)
  - Inappropriate schedule of drug administration [Unknown]
  - Wrong technique in drug usage process [Unknown]
  - Eyelids pruritus [Recovered/Resolved]
